FAERS Safety Report 8277144-X (Version None)
Quarter: 2012Q2

REPORT INFORMATION
  Report Type: 
  Country: None (occurrence: None)
  Receive Date: 20120412
  Receipt Date: 20120411
  Transmission Date: 20120825
  Serious: Yes (Other)
  Sender: FDA-Public Use
  Company Number: US-PFIZER INC-2012090520

PATIENT
  Sex: Male
  Weight: 125 kg

DRUGS (3)
  1. NORVASC [Concomitant]
     Indication: HYPERTENSION
     Dosage: 10 MG DAILY
  2. LYRICA [Suspect]
     Indication: NEUROPATHY PERIPHERAL
     Dosage: 100 MG, 2X/DAY
     Dates: end: 20120301
  3. SEROQUEL [Concomitant]
     Indication: SLEEP DISORDER
     Dosage: 100 MG DAILY AT BED TIME

REACTIONS (1)
  - PAIN IN EXTREMITY [None]
